FAERS Safety Report 18713124 (Version 3)
Quarter: 2021Q1

REPORT INFORMATION
  Report Type: Spontaneous
  Country: DK (occurrence: DK)
  Receive Date: 20210107
  Receipt Date: 20210121
  Transmission Date: 20210419
  Serious: Yes (Death, Congenital Anomaly)
  Sender: FDA-Public Use
  Company Number: DK-PFIZER INC-2021004531

PATIENT

DRUGS (2)
  1. MIFEGYNE [Suspect]
     Active Substance: MIFEPRISTONE
     Indication: ABORTION INDUCED
     Dosage: 200 MG TOTAL
     Route: 064
     Dates: start: 20201110, end: 20201110
  2. CYTOTEC [Suspect]
     Active Substance: MISOPROSTOL
     Indication: ABORTION INDUCED
     Dosage: 0.4 MG TOTAL
     Route: 064
     Dates: start: 20201110, end: 20201110

REACTIONS (3)
  - Maternal exposure during pregnancy [Fatal]
  - Exomphalos [Fatal]
  - Gastroschisis [Fatal]

NARRATIVE: CASE EVENT DATE: 2020
